FAERS Safety Report 8220054-4 (Version None)
Quarter: 2012Q1

REPORT INFORMATION
  Report Type: 
  Country: None (occurrence: None)
  Receive Date: 20120316
  Receipt Date: 20120308
  Transmission Date: 20120608
  Serious: Yes (Hospitalization, Other)
  Sender: FDA-Public Use
  Company Number: 2009SP017682

PATIENT
  Age: 52 Year
  Sex: Female
  Weight: 101.1521 kg

DRUGS (4)
  1. TETRACYCLINE [Concomitant]
  2. DIOVAN HCT [Concomitant]
  3. WELLBUTRIN [Concomitant]
  4. NUVARING [Suspect]
     Indication: CONTRACEPTION
     Dates: start: 20050125, end: 20050524

REACTIONS (22)
  - PULMONARY HYPERTENSION [None]
  - INTERNATIONAL NORMALISED RATIO DECREASED [None]
  - PULMONARY EMBOLISM [None]
  - DEEP VEIN THROMBOSIS [None]
  - UTERINE DILATION AND CURETTAGE [None]
  - CHEST PAIN [None]
  - TREATMENT NONCOMPLIANCE [None]
  - ELECTROCARDIOGRAM ABNORMAL [None]
  - RASH PRURITIC [None]
  - RASH PAPULAR [None]
  - DYSSOMNIA [None]
  - SINUS TACHYCARDIA [None]
  - PLEURAL EFFUSION [None]
  - UTERINE OPERATION [None]
  - HYPERTENSION [None]
  - THROMBOPHLEBITIS SUPERFICIAL [None]
  - PLEURAL FIBROSIS [None]
  - ACIDOSIS [None]
  - DIASTOLIC DYSFUNCTION [None]
  - CERVICOBRACHIAL SYNDROME [None]
  - CARDIOMEGALY [None]
  - HEPATIC CYST [None]
